FAERS Safety Report 5464912-2 (Version None)
Quarter: 2007Q3

REPORT INFORMATION
  Report Type: 
  Country: None (occurrence: None)
  Receive Date: 20070820
  Receipt Date: 20070516
  Transmission Date: 20080115
  Serious: No
  Sender: FDA-Public Use
  Company Number: TPA2007A01085

PATIENT
  Age: 35 Year
  Sex: Female

DRUGS (2)
  1. ROZEREM [Suspect]
     Indication: INSOMNIA
     Dosage: PER ORAL
     Route: 048
  2. CLARINEX [Concomitant]

REACTIONS (4)
  - ANXIETY [None]
  - DELIRIUM [None]
  - INSOMNIA [None]
  - POOR QUALITY SLEEP [None]
